FAERS Safety Report 5016196-7 (Version None)
Quarter: 2006Q2

REPORT INFORMATION
  Report Type: 
  Country: None (occurrence: None)
  Receive Date: 20060414
  Receipt Date: 20060209
  Transmission Date: 20061013
  Serious: No
  Sender: FDA-Public Use
  Company Number: 2006SP000698

PATIENT
  Age: 72 Year
  Sex: Male
  Weight: 97.5234 kg

DRUGS (9)
  1. LUNESTA [Suspect]
     Indication: INSOMNIA
     Dosage: 3 MG;HS;ORAL
     Route: 048
     Dates: start: 20060207
  2. LOPRESSOR [Concomitant]
  3. ATORVASTATIN CALCIUM [Concomitant]
  4. CAPOTEN [Concomitant]
  5. WELLBUTRIN [Concomitant]
  6. ATIVAN [Concomitant]
  7. AMIODARONE HCL [Concomitant]
  8. LIBRAX [Concomitant]
  9. ASPIRIN [Concomitant]

REACTIONS (2)
  - DRUG INEFFECTIVE [None]
  - MIDDLE INSOMNIA [None]
